FAERS Safety Report 5125187-7 (Version None)
Quarter: 2006Q4

REPORT INFORMATION
  Report Type: 
  Country: None (occurrence: None)
  Receive Date: 20061011
  Receipt Date: 20060927
  Transmission Date: 20070319
  Serious: Yes (Life-Threatening)
  Sender: FDA-Public Use
  Company Number: GB-BRISTOL-MYERS SQUIBB COMPANY-13536701

PATIENT
  Age: 2 Year
  Sex: Female

DRUGS (4)
  1. CYCLOPHOSPHAMIDE [Suspect]
     Indication: BRAIN NEOPLASM
     Route: 042
     Dates: start: 20060607, end: 20060608
  2. CODEINE [Concomitant]
     Indication: PAIN
     Route: 048
  3. FLUCONAZOLE [Concomitant]
     Indication: ORAL CANDIDIASIS
     Route: 048
     Dates: start: 20050518
  4. WARFARIN SODIUM [Concomitant]
     Indication: DEEP VEIN THROMBOSIS
     Route: 048
     Dates: start: 20060308, end: 20060607

REACTIONS (4)
  - AGITATION [None]
  - ERYTHEMA [None]
  - PERIORBITAL OEDEMA [None]
  - TACHYCARDIA [None]
